FAERS Safety Report 7118835-3 (Version None)
Quarter: 2010Q4

REPORT INFORMATION
  Report Type: 
  Country: None (occurrence: None)
  Receive Date: 20101123
  Receipt Date: 20100921
  Transmission Date: 20110411
  Serious: No
  Sender: FDA-Public Use
  Company Number: US-KINGPHARMUSA00001-K201001179

PATIENT
  Sex: Male

DRUGS (2)
  1. FLECTOR [Suspect]
     Indication: MUSCLE STRAIN
     Dosage: UNK PATCH, UNK
     Route: 061
  2. FLECTOR [Suspect]
     Indication: PAIN IN EXTREMITY

REACTIONS (2)
  - DRUG INEFFECTIVE [None]
  - MALAISE [None]
